FAERS Safety Report 25033934 (Version 4)
Quarter: 2025Q2

REPORT INFORMATION
  Report Type: Spontaneous
  Country: US (occurrence: US)
  Receive Date: 20250303
  Receipt Date: 20250402
  Transmission Date: 20250716
  Serious: No
  Sender: AMGEN
  Company Number: US-AMGEN-USASP2025033724

PATIENT
  Age: 70 Year
  Sex: Male
  Weight: 63.7 kg

DRUGS (2)
  1. NEULASTA [Suspect]
     Active Substance: PEGFILGRASTIM
     Indication: Neutropenia
     Route: 058
  2. NEULASTA [Suspect]
     Active Substance: PEGFILGRASTIM
     Route: 058

REACTIONS (4)
  - Unintentional medical device removal [Unknown]
  - Computerised tomogram [Unknown]
  - Product preparation error [Unknown]
  - Device use error [Unknown]

NARRATIVE: CASE EVENT DATE: 20250213
